FAERS Safety Report 24714294 (Version 1)
Quarter: 2024Q4

REPORT INFORMATION
  Report Type: Spontaneous
  Country: FR (occurrence: FR)
  Receive Date: 20241209
  Receipt Date: 20241209
  Transmission Date: 20250114
  Serious: Yes (Other)
  Sender: ALEXION PHARMACEUTICALS
  Company Number: FR-SA-2024SA352492

PATIENT
  Age: 27 Day

DRUGS (4)
  1. NIRSEVIMAB [Suspect]
     Active Substance: NIRSEVIMAB
     Indication: Respiratory syncytial virus immunisation
     Dosage: 1 DF, 1X
     Route: 065
  2. NIRSEVIMAB [Suspect]
     Active Substance: NIRSEVIMAB
     Dosage: 1 DF, 1X
     Route: 065
  3. NIRSEVIMAB [Suspect]
     Active Substance: NIRSEVIMAB
     Dosage: 1 DF, 1X
     Route: 065
  4. NIRSEVIMAB [Suspect]
     Active Substance: NIRSEVIMAB
     Dosage: 1 DF, 1X
     Route: 065

REACTIONS (1)
  - Respiratory syncytial virus bronchiolitis [Unknown]
